FAERS Safety Report 5010222-7 (Version None)
Quarter: 2006Q2

REPORT INFORMATION
  Report Type: 
  Country: None (occurrence: None)
  Receive Date: 20060404
  Receipt Date: 20051214
  Transmission Date: 20061013
  Serious: No
  Sender: FDA-Public Use
  Company Number: US200512002488

PATIENT
  Age: 40 Year
  Sex: Female

DRUGS (4)
  1. CYMBALTA [Suspect]
     Dosage: 20 MG, 2/D,
     Dates: start: 20051209
  2. PREGABALIN (PREGABALIN) [Concomitant]
  3. LEXAPRO [Concomitant]
  4. TOPROL-XL [Concomitant]

REACTIONS (4)
  - DEPRESSED MOOD [None]
  - FATIGUE [None]
  - FEELING ABNORMAL [None]
  - SOMNOLENCE [None]
